FAERS Safety Report 25450829 (Version 1)
Quarter: 2025Q2

REPORT INFORMATION
  Report Type: Spontaneous
  Country: US (occurrence: US)
  Receive Date: 20250618
  Receipt Date: 20250618
  Transmission Date: 20250716
  Serious: No
  Sender: PFIZER
  Company Number: US-PFIZER INC-PV202500072440

PATIENT
  Age: 80 Year
  Sex: Female

DRUGS (1)
  1. INLYTA [Suspect]
     Active Substance: AXITINIB
     Dates: start: 202505

REACTIONS (3)
  - Blood pressure increased [Unknown]
  - Glossodynia [Unknown]
  - Product dose omission issue [Unknown]
